FAERS Safety Report 21811391 (Version 2)
Quarter: 2023Q1

REPORT INFORMATION
  Report Type: Report from Study
  Country: IT (occurrence: IT)
  Receive Date: 20230103
  Receipt Date: 20230306
  Transmission Date: 20230417
  Serious: Yes (Other)
  Sender: FDA-Public Use
  Company Number: IT-ROCHE-3246356

PATIENT
  Age: 45 Year
  Sex: Female
  Weight: 65 kg

DRUGS (17)
  1. DOCETAXEL [Suspect]
     Active Substance: DOCETAXEL
     Indication: HER2 positive breast cancer
     Dosage: MOST RECENT DOSE PRIOR TO THE EVENT: 09/MAY/2017
     Route: 042
     Dates: start: 20170418, end: 20170418
  2. EXEMESTANE [Suspect]
     Active Substance: EXEMESTANE
     Indication: HER2 positive breast cancer
     Dosage: 25 MG, 1X/DAY
     Route: 048
     Dates: start: 20171019, end: 20200803
  3. EXEMESTANE [Suspect]
     Active Substance: EXEMESTANE
     Dosage: UNK
     Route: 065
     Dates: start: 20171018
  4. TRASTUZUMAB [Suspect]
     Active Substance: TRASTUZUMAB
     Indication: HER2 positive breast cancer
     Dosage: MOST RECENT DOSE PRIOR TO THE EVENT: 09/MAY/2017
     Route: 042
     Dates: start: 20170418, end: 20170418
  5. TUCATINIB [Suspect]
     Active Substance: TUCATINIB
     Indication: HER2 positive breast cancer
     Dosage: FREQ:.25 D;
     Route: 048
     Dates: start: 20221121
  6. CAPECITABINE [Suspect]
     Active Substance: CAPECITABINE
     Indication: HER2 positive breast cancer
     Dosage: FREQ:.25 D;
     Route: 048
     Dates: start: 20221121
  7. ADO-TRASTUZUMAB EMTANSINE [Suspect]
     Active Substance: ADO-TRASTUZUMAB EMTANSINE
     Indication: HER2 positive breast cancer
     Dosage: 3.6 MG/KG, EVERY 3 WEEKS
     Route: 042
     Dates: start: 20200803, end: 20210927
  8. PERTUZUMAB [Suspect]
     Active Substance: PERTUZUMAB
     Indication: HER2 positive breast cancer
     Dosage: MOST RECENT DOSE PRIOR TO THE EVENT: 09/MAY/2017
     Route: 042
     Dates: start: 20170418, end: 20170418
  9. DIETARY SUPPLEMENT\HERBALS\MILK THISTLE [Concomitant]
     Active Substance: DIETARY SUPPLEMENT\HERBALS\MILK THISTLE
     Dosage: ONGOING = NOT CHECKED
     Dates: start: 20220316, end: 20221109
  10. LANSOPRAZOLE [Concomitant]
     Active Substance: LANSOPRAZOLE
     Dosage: ONGOING = CHECKED
     Dates: start: 20201005
  11. MOVICOL [Concomitant]
     Active Substance: POLYETHYLENE GLYCOL 3350\POTASSIUM CHLORIDE\SODIUM BICARBONATE\SODIUM CHLORIDE
     Dosage: ONGOING = CHECKED
     Dates: start: 20220413
  12. AMITRIPTYLINE HYDROCHLORIDE [Concomitant]
     Active Substance: AMITRIPTYLINE HYDROCHLORIDE
     Dosage: ONGOING = NOT CHECKED
     Dates: start: 20210927, end: 20220622
  13. LEVETIRACETAM [Concomitant]
     Active Substance: LEVETIRACETAM
     Dosage: ONGOING = CHECKED
     Dates: start: 20210614
  14. APREPITANT [Concomitant]
     Active Substance: APREPITANT
     Dosage: ONGOING = NOT CHECKED
     Dates: start: 20220112, end: 20220622
  15. APREPITANT [Concomitant]
     Active Substance: APREPITANT
     Dosage: ONGOING = NOT CHECKED
     Dates: start: 20220112, end: 20220622
  16. ENANTONE LP [Concomitant]
     Active Substance: LEUPROLIDE ACETATE
     Dates: start: 20171018
  17. CHLORPHENIRAMINE [Concomitant]
     Active Substance: CHLORPHENIRAMINE
     Dosage: ONGOING = CHECKED
     Dates: start: 20170718

REACTIONS (1)
  - Thrombocytopenia [Not Recovered/Not Resolved]

NARRATIVE: CASE EVENT DATE: 20220406
